FAERS Safety Report 10257772 (Version 3)
Quarter: 2014Q4

REPORT INFORMATION
  Report Type: Spontaneous
  Country: US (occurrence: US)
  Receive Date: 20140625
  Receipt Date: 20141105
  Transmission Date: 20150528
  Serious: Yes (Hospitalization, Other)
  Sender: FDA-Public Use
  Company Number: US-AMGEN INC.-USASP2014046654

PATIENT
  Age: 58 Year
  Sex: Female

DRUGS (1)
  1. ENBREL [Suspect]
     Active Substance: ETANERCEPT
     Indication: RHEUMATOID ARTHRITIS
     Dosage: 50 MG, QWK
     Route: 058
     Dates: start: 20140529, end: 20141006

REACTIONS (16)
  - Musculoskeletal stiffness [Not Recovered/Not Resolved]
  - Hypoaesthesia [Recovered/Resolved]
  - Injection site pruritus [Recovered/Resolved]
  - Poor peripheral circulation [Recovered/Resolved]
  - Drug ineffective [Recovered/Resolved]
  - Feeling cold [Recovered/Resolved]
  - Peripheral swelling [Not Recovered/Not Resolved]
  - Injection site erythema [Recovered/Resolved]
  - Pain in extremity [Not Recovered/Not Resolved]
  - Back disorder [Not Recovered/Not Resolved]
  - Limb discomfort [Recovered/Resolved]
  - Injection site bruising [Recovered/Resolved]
  - Gait disturbance [Not Recovered/Not Resolved]
  - Injection site hypersensitivity [Recovered/Resolved]
  - Dyspnoea [Recovered/Resolved]
  - Injection site swelling [Recovered/Resolved]

NARRATIVE: CASE EVENT DATE: 2014
